FAERS Safety Report 10640578 (Version 1)
Quarter: 2014Q4

REPORT INFORMATION
  Report Type: Spontaneous
  Country: US (occurrence: None)
  Receive Date: 20141208
  Receipt Date: 20141208
  Transmission Date: 20150529
  Serious: Yes (Other)
  Sender: FDA-Public Use
  Company Number: None

PATIENT
  Age: 57 Year
  Sex: Female
  Weight: 75.75 kg

DRUGS (2)
  1. AMPHETAMINE SALT [Suspect]
     Active Substance: AMPHETAMINE ASPARTATE\AMPHETAMINE SULFATE\DEXTROAMPHETAMINE SACCHARATE\DEXTROAMPHETAMINE SULFATE
     Indication: DEPRESSION
     Dosage: 1 TABLET
     Route: 048
     Dates: start: 20141125, end: 20141204
  2. AMPHETAMINE SALT [Suspect]
     Active Substance: AMPHETAMINE ASPARTATE\AMPHETAMINE SULFATE\DEXTROAMPHETAMINE SACCHARATE\DEXTROAMPHETAMINE SULFATE
     Indication: ATTENTION DEFICIT/HYPERACTIVITY DISORDER
     Dosage: 1 TABLET
     Route: 048
     Dates: start: 20141125, end: 20141204

REACTIONS (16)
  - Speech disorder [None]
  - Product substitution issue [None]
  - Dyspnoea [None]
  - Crying [None]
  - Anxiety [None]
  - Headache [None]
  - Feeling abnormal [None]
  - Cognitive disorder [None]
  - Eating disorder [None]
  - Malaise [None]
  - Drug ineffective [None]
  - Nausea [None]
  - Fall [None]
  - Thinking abnormal [None]
  - Stress [None]
  - Product quality issue [None]

NARRATIVE: CASE EVENT DATE: 20141201
